FAERS Safety Report 23180377 (Version 1)
Quarter: 2023Q4

REPORT INFORMATION
  Report Type: Other
  Country: CN (occurrence: None)
  Receive Date: 20231114
  Receipt Date: 20231114
  Transmission Date: 20240109
  Serious: Yes (Death, Other)
  Sender: FDA-Public Use
  Company Number: CN-ROCHE-3451719

PATIENT
  Sex: Female

DRUGS (3)
  1. PYROTINIB [Suspect]
     Active Substance: PYROTINIB
     Indication: Breast cancer metastatic
     Route: 048
  2. TRASTUZUMAB [Suspect]
     Active Substance: TRASTUZUMAB
     Indication: Breast cancer metastatic
     Dosage: 8 MG/KG IN CYCLE 1 AND 6 MG/KG IN SUBSEQUENT CYCLES
     Route: 042
  3. DOCETAXEL [Suspect]
     Active Substance: DOCETAXEL\DOCETAXEL ANHYDROUS
     Indication: Breast cancer metastatic
     Route: 065

REACTIONS (54)
  - Diabetic hyperosmolar coma [Fatal]
  - Diarrhoea [Unknown]
  - White blood cell count decreased [Unknown]
  - Neutrophil count decreased [Unknown]
  - Anaemia [Unknown]
  - Vomiting [Unknown]
  - Weight decreased [Unknown]
  - Nausea [Unknown]
  - Hypokalaemia [Unknown]
  - Aspartate aminotransferase increased [Unknown]
  - Alanine aminotransferase increased [Unknown]
  - Alopecia [Unknown]
  - Blood creatinine increased [Unknown]
  - Decreased appetite [Unknown]
  - Hypertriglyceridaemia [Unknown]
  - Rash [Unknown]
  - Gamma-glutamyltransferase increased [Unknown]
  - Hypocalcaemia [Unknown]
  - Hypercholesterolaemia [Unknown]
  - Febrile neutropenia [Unknown]
  - Pneumonia [Unknown]
  - Post procedural infection [Unknown]
  - Infection [Unknown]
  - Pleural effusion [Unknown]
  - Ventricular extrasystoles [Unknown]
  - Sinus tachycardia [Unknown]
  - Hypersensitivity [Unknown]
  - Intestinal obstruction [Unknown]
  - Platelet count decreased [Unknown]
  - Acute kidney injury [Unknown]
  - Abdominal pain [Unknown]
  - Gastrointestinal haemorrhage [Unknown]
  - Gastritis [Unknown]
  - Tooth development disorder [Unknown]
  - Electrocardiogram QT prolonged [Unknown]
  - Hypoalbuminaemia [Unknown]
  - Electrolyte imbalance [Unknown]
  - Cystitis [Unknown]
  - Cellulitis [Unknown]
  - Carbuncle [Unknown]
  - Depressed level of consciousness [Unknown]
  - Syncope [Unknown]
  - Neuropathy peripheral [Unknown]
  - Chronic kidney disease [Unknown]
  - Pneumonitis [Unknown]
  - Pulmonary fibrosis [Unknown]
  - Asthenia [Unknown]
  - Oedema peripheral [Unknown]
  - Arrhythmia [Unknown]
  - Left ventricular dysfunction [Unknown]
  - Cholecystitis [Unknown]
  - Spinal compression fracture [Unknown]
  - Fistula [Unknown]
  - Hypertension [Unknown]
